FAERS Safety Report 5622239-X (Version None)
Quarter: 2008Q1

REPORT INFORMATION
  Report Type: 
  Country: None (occurrence: None)
  Receive Date: 20080114
  Receipt Date: 20071005
  Transmission Date: 20080703
  Serious: Yes (Other)
  Sender: FDA-Public Use
  Company Number: A03200705960

PATIENT
  Age: 66 Year
  Sex: Female

DRUGS (8)
  1. PLAVIX [Suspect]
     Indication: CARDIAC OPERATION
     Dosage: 75 MG QD - ORAL
     Route: 048
     Dates: start: 20070823, end: 20070830
  2. ATENOLOL [Concomitant]
  3. FOLIC ACID [Concomitant]
  4. FUROSEMIDE [Concomitant]
  5. AMIODARONE HYDROCHLORIDE [Concomitant]
  6. POTASSIUM CHLORIDE [Concomitant]
  7. PARACETAMOL [Concomitant]
  8. LEVOTHYROXINE SODIUM [Concomitant]

REACTIONS (4)
  - CONFUSIONAL STATE [None]
  - HALLUCINATION [None]
  - MALAISE [None]
  - VOMITING [None]
